FAERS Safety Report 8948337 (Version 2)
Quarter: 2012Q4

REPORT INFORMATION
  Report Type: 
  Country: MX (occurrence: MX)
  Receive Date: 20121206
  Receipt Date: 20121217
  Transmission Date: 20130627
  Serious: Yes (Other)
  Sender: FDA-Public Use
  Company Number: PHHY2012MX111886

PATIENT
  Age: 90 Year
  Sex: Female

DRUGS (5)
  1. GALVUS MET [Suspect]
     Indication: BLOOD GLUCOSE ABNORMAL
     Dosage: UNK UKN, UNK
     Dates: start: 20091213
  2. EXFORGE HCT [Suspect]
     Indication: HYPERTENSION
     Dosage: 0.5 DF(160/5/12.5 mg), daily
     Route: 048
     Dates: start: 20110612, end: 201206
  3. PRAZOLAM [Concomitant]
     Indication: OESOPHAGEAL PAIN
     Dosage: 1 DF, daily
     Dates: start: 2002
  4. PRAZOLAM [Concomitant]
     Indication: OROPHARYNGEAL PAIN
  5. CALTRATE [Concomitant]
     Indication: BLOOD CALCIUM ABNORMAL
     Dosage: UNK UKN, UNK
     Dates: start: 201210

REACTIONS (4)
  - Blood pressure increased [Recovered/Resolved]
  - Faecal volume increased [Recovered/Resolved]
  - Fluid retention [Recovered/Resolved]
  - Oedema peripheral [Recovered/Resolved]
